FAERS Safety Report 19089470 (Version 2)
Quarter: 2021Q2

REPORT INFORMATION
  Report Type: Report from Study
  Country: TZ (occurrence: TZ)
  Receive Date: 20210403
  Receipt Date: 20210512
  Transmission Date: 20210717
  Serious: Yes (Death, Life-Threatening)
  Sender: FDA-Public Use
  Company Number: TZ-CIPLA LTD.-2021TZ02491

PATIENT

DRUGS (6)
  1. LOPINAVIR/RITONAVIR [Suspect]
     Active Substance: LOPINAVIR\RITONAVIR
     Indication: HIV INFECTION WHO CLINICAL STAGE III
     Dosage: 2 DOSAGE FORM, BID (80/20 MG TWICE DAILY)
     Route: 065
     Dates: start: 20180320, end: 20180325
  2. COTRIMOXAZOLE [Concomitant]
     Active Substance: SULFAMETHOXAZOLE\TRIMETHOPRIM
     Indication: PROPHYLAXIS
     Dosage: 120 MILLIGRAM, QD
     Route: 065
     Dates: start: 20180320
  3. ABACAVIR/LAMIVUDINE [Suspect]
     Active Substance: ABACAVIR\LAMIVUDINE
     Indication: HIV INFECTION WHO CLINICAL STAGE III
     Dosage: 1 DOSAGE FORM, BID (60 MG/30 MG TWICE DAILY)
     Route: 048
     Dates: start: 20180320, end: 20180325
  4. NYSTATIN. [Concomitant]
     Active Substance: NYSTATIN
     Indication: PRODUCT USED FOR UNKNOWN INDICATION
     Dosage: 5 MILLILITER, TID (500?000 UNITS)
     Route: 065
     Dates: start: 20180320
  5. AMOXICILLIN + CLAVULANIC ACID [Concomitant]
     Active Substance: AMOXICILLIN\CLAVULANIC ACID
     Indication: ANTIBIOTIC THERAPY
     Dosage: 5 MILLILITER, TID
     Route: 065
     Dates: start: 20180320
  6. PARACETAMOL [Concomitant]
     Active Substance: ACETAMINOPHEN
     Indication: PRODUCT USED FOR UNKNOWN INDICATION
     Dosage: 75 MILLIGRAM, TID
     Route: 065
     Dates: start: 20180320, end: 20180323

REACTIONS (1)
  - Anaemia [None]

NARRATIVE: CASE EVENT DATE: 20180325
